FAERS Safety Report 10900612 (Version 1)
Quarter: 2015Q1

REPORT INFORMATION
  Report Type: Spontaneous
  Country: GB (occurrence: GB)
  Receive Date: 20150310
  Receipt Date: 20150310
  Transmission Date: 20150721
  Serious: Yes (Other)
  Sender: FDA-Public Use
  Company Number: GB-CIPLA LTD.-2015GB01731

PATIENT

DRUGS (4)
  1. IBUPROFEN / IBUPROFEN LYSINE [Concomitant]
  2. SERTRALINE [Suspect]
     Active Substance: SERTRALINE HYDROCHLORIDE
     Indication: DEPRESSION
     Dosage: 50 MG, UNK
     Route: 048
     Dates: start: 2012
  3. ASPIRIN / CAFFEINE / PARACETAMOL [Concomitant]
  4. CINEOLE/ MENTHOL / OXYMETAZOLINE HYDROCHLORIDE / CAMPHOR [Concomitant]

REACTIONS (2)
  - Alopecia [Not Recovered/Not Resolved]
  - Vulvovaginal dryness [Not Recovered/Not Resolved]
